FAERS Safety Report 12801785 (Version 1)
Quarter: 2016Q3

REPORT INFORMATION
  Report Type: Spontaneous
  Country: US (occurrence: US)
  Receive Date: 20160930
  Receipt Date: 20160930
  Transmission Date: 20161109
  Serious: Yes (Disabling)
  Sender: FDA-Public Use
  Company Number: None

PATIENT
  Age: 53 Year
  Sex: Female
  Weight: 78 kg

DRUGS (2)
  1. OPDIVO [Suspect]
     Active Substance: NIVOLUMAB
     Indication: RENAL CELL CARCINOMA
     Dosage: OPDIVO 40 MG VIALS - INTRAVENOUS - EVERY 3 WEEKS
     Route: 042
     Dates: start: 20160801
  2. OPDIVO [Suspect]
     Active Substance: NIVOLUMAB
     Indication: RENAL CELL CARCINOMA
     Dosage: OPDIVO 100 MG - DATES OF USE 11AUG2016, 01SEP2016, 15SEP2016
     Route: 042
     Dates: start: 20160811

REACTIONS (3)
  - Condition aggravated [None]
  - Hypoaesthesia [None]
  - Muscular weakness [None]

NARRATIVE: CASE EVENT DATE: 20160922
